FAERS Safety Report 15840344 (Version 2)
Quarter: 2019Q1

REPORT INFORMATION
  Report Type: Spontaneous
  Country: CA (occurrence: CA)
  Receive Date: 20190117
  Receipt Date: 20190131
  Transmission Date: 20190417
  Serious: Yes (Hospitalization, Other)
  Sender: FDA-Public Use
  Company Number: CA-AMGEN-CANSP2019005654

PATIENT
  Sex: Female

DRUGS (1)
  1. ARANESP [Suspect]
     Active Substance: DARBEPOETIN ALFA
     Indication: ANAEMIA
     Dosage: 20 MCG, QWK
     Route: 065

REACTIONS (4)
  - Leukopenia [Unknown]
  - Unevaluable event [Unknown]
  - Aplasia pure red cell [Unknown]
  - Neutropenia [Unknown]

NARRATIVE: CASE EVENT DATE: 201901
